FAERS Safety Report 24063925 (Version 1)
Quarter: 2024Q3

REPORT INFORMATION
  Report Type: Spontaneous
  Country: US (occurrence: US)
  Receive Date: 20240709
  Receipt Date: 20240709
  Transmission Date: 20241016
  Serious: No
  Sender: DR REDDYS
  Company Number: None

PATIENT
  Age: 69 Year
  Sex: Male

DRUGS (8)
  1. CLOZAPINE [Suspect]
     Active Substance: CLOZAPINE
     Indication: Schizoaffective disorder
     Dosage: EVENING DOSE; ON DAY SIX
  2. CLOZAPINE [Suspect]
     Active Substance: CLOZAPINE
     Dosage: INITIATED AND INCREASED BY 25 MG DAILY; CLONAZAPINE TITRATION RATE (AVERAGED) 25MG/DAY
  3. CLOZAPINE [Suspect]
     Active Substance: CLOZAPINE
     Dosage: AT BEDTIME D8
  4. CLOZAPINE [Suspect]
     Active Substance: CLOZAPINE
     Dosage: D14
  5. CLOZAPINE [Suspect]
     Active Substance: CLOZAPINE
     Dosage: D15
  6. RISPERIDONE [Concomitant]
     Active Substance: RISPERIDONE
     Indication: Schizoaffective disorder
     Route: 048
  7. RISPERIDONE [Concomitant]
     Active Substance: RISPERIDONE
  8. ATORVASTATIN [Concomitant]
     Active Substance: ATORVASTATIN
     Indication: Product used for unknown indication

REACTIONS (13)
  - C-reactive protein increased [Recovered/Resolved]
  - Toxicity to various agents [Recovered/Resolved]
  - Salivary hypersecretion [Recovered/Resolved]
  - Tachycardia [Recovered/Resolved]
  - Thinking abnormal [Recovered/Resolved]
  - White blood cell count increased [Recovered/Resolved]
  - Dysarthria [Recovered/Resolved]
  - Constipation [Recovered/Resolved]
  - Balance disorder [Recovered/Resolved]
  - Neutrophil count increased [Recovered/Resolved]
  - Pyrexia [Recovered/Resolved]
  - Hypersomnia [Recovered/Resolved]
  - Dizziness [Recovered/Resolved]
